FAERS Safety Report 4594828-5 (Version None)
Quarter: 2005Q1

REPORT INFORMATION
  Report Type: 
  Country: None (occurrence: None)
  Receive Date: 20050223
  Receipt Date: 20050208
  Transmission Date: 20050727
  Serious: Yes (Hospitalization)
  Sender: FDA-Public Use
  Company Number: 10215

PATIENT
  Age: 73 Year
  Sex: Female

DRUGS (2)
  1. METHOTREXATE [Suspect]
     Dosage: 10 MG
     Dates: start: 20030716
  2. LEFLUNOMIDE [Suspect]
     Dates: start: 20030716, end: 20040714

REACTIONS (1)
  - NORMOCHROMIC NORMOCYTIC ANAEMIA [None]
